APPROVED DRUG PRODUCT: TOLMETIN SODIUM
Active Ingredient: TOLMETIN SODIUM
Strength: EQ 200MG BASE
Dosage Form/Route: TABLET;ORAL
Application: A073588 | Product #001
Applicant: CHARTWELL RX SCIENCES LLC
Approved: Jul 31, 1992 | RLD: No | RS: No | Type: DISCN